FAERS Safety Report 25174285 (Version 1)
Quarter: 2025Q2

REPORT INFORMATION
  Report Type: Report from Study
  Country: PL (occurrence: PL)
  Receive Date: 20250408
  Receipt Date: 20250408
  Transmission Date: 20250717
  Serious: Yes (Other)
  Sender: MYLAN
  Company Number: PL-JNJFOC-20230145462

PATIENT
  Sex: Female
  Weight: 63 kg

DRUGS (14)
  1. APIXABAN [Suspect]
     Active Substance: APIXABAN
     Indication: Product used for unknown indication
  2. SELEXIPAG [Suspect]
     Active Substance: SELEXIPAG
     Indication: Pulmonary arterial hypertension
     Dosage: 200 MICROGRAM, BID
     Dates: start: 20221214, end: 202301
  3. SELEXIPAG [Suspect]
     Active Substance: SELEXIPAG
     Dosage: 600 MICROGRAM, BID
     Dates: start: 202301, end: 202301
  4. SELEXIPAG [Suspect]
     Active Substance: SELEXIPAG
     Dosage: 400 MICROGRAM, BID
     Dates: start: 20230111
  5. ELIQUIS [Concomitant]
     Active Substance: APIXABAN
     Indication: Anticoagulant therapy
  6. REVATIO [Concomitant]
     Active Substance: SILDENAFIL CITRATE
     Indication: Pulmonary arterial hypertension
     Dates: start: 20220929, end: 20221214
  7. REVATIO [Concomitant]
     Active Substance: SILDENAFIL CITRATE
  8. BOSENTAN [Concomitant]
     Active Substance: BOSENTAN
     Indication: Pulmonary arterial hypertension
     Dates: start: 20221027, end: 20221027
  9. BOSENTAN [Concomitant]
     Active Substance: BOSENTAN
  10. POTASSIUM CHLORIDE [Concomitant]
     Active Substance: POTASSIUM CHLORIDE
     Indication: Hypokalaemia
  11. EUTHYROX [Concomitant]
     Active Substance: LEVOTHYROXINE SODIUM
     Indication: Hypothyroidism
  12. Trifas [Concomitant]
     Indication: Hypertension
  13. Bibloc [Concomitant]
     Indication: Cardiac failure chronic
  14. RAMIPRIL [Concomitant]
     Active Substance: RAMIPRIL
     Indication: Hypertension

REACTIONS (10)
  - Neutropenia [Unknown]
  - Haemorrhage [Recovered/Resolved]
  - Palpitations [Unknown]
  - Chest pain [Not Recovered/Not Resolved]
  - Bone pain [Recovered/Resolved]
  - Peripheral swelling [Not Recovered/Not Resolved]
  - Headache [Recovered/Resolved]
  - Pain in jaw [Unknown]
  - Arthralgia [Recovered/Resolved]
  - Epistaxis [Recovered/Resolved]

NARRATIVE: CASE EVENT DATE: 20220101
